FAERS Safety Report 20199863 (Version 2)
Quarter: 2022Q1

REPORT INFORMATION
  Report Type: Spontaneous
  Country: JP (occurrence: JP)
  Receive Date: 20211217
  Receipt Date: 20220119
  Transmission Date: 20220424
  Serious: Yes (Hospitalization)
  Sender: FDA-Public Use
  Company Number: ALC2021JP006692

PATIENT

DRUGS (1)
  1. AZOPT [Suspect]
     Active Substance: BRINZOLAMIDE
     Indication: Product used for unknown indication
     Dosage: UNK
     Route: 047

REACTIONS (1)
  - Cardiac failure [Unknown]
